FAERS Safety Report 5401375-7 (Version None)
Quarter: 2007Q3

REPORT INFORMATION
  Report Type: 
  Country: None (occurrence: None)
  Receive Date: 20070731
  Receipt Date: 20070713
  Transmission Date: 20080115
  Serious: Yes (Hospitalization)
  Sender: FDA-Public Use
  Company Number: B0479194A

PATIENT
  Age: 64 Year
  Sex: Female

DRUGS (8)
  1. TAGAMET [Suspect]
     Route: 065
     Dates: start: 20070613, end: 20070622
  2. OMEPRAZOLE [Suspect]
     Route: 065
     Dates: start: 20070522, end: 20070612
  3. CIPROFLOXACIN [Suspect]
     Route: 065
     Dates: start: 20070612, end: 20070615
  4. PRODIF [Suspect]
     Route: 042
     Dates: start: 20070613, end: 20070618
  5. VANCOMYCIN HYDROCHLORIDE [Suspect]
     Route: 065
     Dates: start: 20070613, end: 20070614
  6. MAXIPIME [Suspect]
     Route: 042
     Dates: start: 20070615, end: 20070618
  7. GRAN [Concomitant]
     Dates: start: 20070613
  8. PREDONINE [Concomitant]
     Dates: start: 20070620, end: 20070621

REACTIONS (3)
  - C-REACTIVE PROTEIN INCREASED [None]
  - PANCYTOPENIA [None]
  - PYREXIA [None]
